FAERS Safety Report 20728026 (Version 1)
Quarter: 2022Q2

REPORT INFORMATION
  Report Type: Report from Study
  Country: IE (occurrence: IE)
  Receive Date: 20220420
  Receipt Date: 20220420
  Transmission Date: 20220721
  Serious: Yes (Hospitalization)
  Sender: FDA-Public Use
  Company Number: IE-BAXTER-2022BAX006831

PATIENT
  Sex: Male
  Weight: 80.3 kg

DRUGS (7)
  1. DAPTOMYCIN [Suspect]
     Active Substance: DAPTOMYCIN
     Indication: Postoperative wound infection
     Dosage: 800 MG, 1X/DAY
     Route: 042
     Dates: start: 20220322
  2. DALMANE [Concomitant]
     Active Substance: FLURAZEPAM HYDROCHLORIDE
     Dosage: UNK
     Route: 065
  3. OXYCONTIN [Concomitant]
     Active Substance: OXYCODONE HYDROCHLORIDE
     Dosage: 80 MG, 1X/DAY
     Route: 065
  4. SERETIDE [Concomitant]
     Active Substance: FLUTICASONE PROPIONATE\SALMETEROL XINAFOATE
     Dosage: UNK
     Route: 065
  5. ESOMEPRAZOLE [Concomitant]
     Active Substance: ESOMEPRAZOLE
     Dosage: UNK
     Route: 065
  6. ACETAMINOPHEN [Concomitant]
     Active Substance: ACETAMINOPHEN
     Dosage: UNK, AS NEEDED
     Route: 065
  7. VENTOLIN [Concomitant]
     Active Substance: ALBUTEROL SULFATE
     Dosage: UNK
     Route: 065

REACTIONS (2)
  - Seizure [Not Recovered/Not Resolved]
  - Sepsis [Not Recovered/Not Resolved]

NARRATIVE: CASE EVENT DATE: 20220328
